FAERS Safety Report 5802377-9 (Version None)
Quarter: 2008Q3

REPORT INFORMATION
  Report Type: 
  Country: None (occurrence: None)
  Receive Date: 20080707
  Receipt Date: 20080625
  Transmission Date: 20090109
  Serious: Yes (Other)
  Sender: FDA-Public Use
  Company Number: AT-GILEAD-2008-0017112

PATIENT
  Age: 54 Year
  Sex: Male

DRUGS (3)
  1. TRUVADA [Suspect]
     Indication: HIV INFECTION
     Dates: start: 20071101
  2. DARUNAVIR [Concomitant]
     Indication: HIV INFECTION
  3. NORVIR [Concomitant]
     Indication: HIV INFECTION

REACTIONS (1)
  - OSTEONECROSIS [None]
